FAERS Safety Report 19133817 (Version 1)
Quarter: 2021Q2

REPORT INFORMATION
  Report Type: Spontaneous
  Country: GB (occurrence: GB)
  Receive Date: 20210414
  Receipt Date: 20210414
  Transmission Date: 20210717
  Serious: Yes (Other)
  Sender: FDA-Public Use
  Company Number: GB-TEVA-2021-GB-1900015

PATIENT
  Age: 60 Year
  Sex: Male

DRUGS (3)
  1. CISPLATIN. [Suspect]
     Active Substance: CISPLATIN
     Indication: TESTICULAR MALIGNANT TERATOMA
     Dosage: THE PATIENT RECEIVED 4 CYCLES
     Route: 065
  2. VINBLASTINE [Suspect]
     Active Substance: VINBLASTINE
     Indication: TESTICULAR MALIGNANT TERATOMA
     Dosage: THE PATIENT RECEIVED 4 CYCLES
     Route: 065
  3. BLEOMYCIN [Suspect]
     Active Substance: BLEOMYCIN SULFATE
     Indication: TESTICULAR MALIGNANT TERATOMA
     Dosage: THE PATIENT RECEIVED 4 CYCLES
     Route: 065

REACTIONS (2)
  - Non-Hodgkin^s lymphoma stage IV [Recovered/Resolved]
  - Diffuse large B-cell lymphoma stage IV [Recovered/Resolved]
